FAERS Safety Report 8261664-8 (Version None)
Quarter: 2012Q2

REPORT INFORMATION
  Report Type: 
  Country: None (occurrence: None)
  Receive Date: 20120405
  Receipt Date: 20120405
  Transmission Date: 20120825
  Serious: Yes (Other)
  Sender: FDA-Public Use
  Company Number: None

PATIENT
  Age: 72 Year
  Sex: Male
  Weight: 101.6 kg

DRUGS (1)
  1. SPIRONOLACTONE [Suspect]
     Indication: HYPERTENSION
     Dosage: 25 MG.
     Route: 048
     Dates: start: 20050110, end: 20120321

REACTIONS (3)
  - HYPERAESTHESIA [None]
  - BREAST PAIN [None]
  - NIPPLE PAIN [None]
